FAERS Safety Report 5786367-0 (Version None)
Quarter: 2008Q2

REPORT INFORMATION
  Report Type: 
  Country: None (occurrence: None)
  Receive Date: 20080619
  Receipt Date: 20080528
  Transmission Date: 20081010
  Serious: Yes (Life-Threatening)
  Sender: FDA-Public Use
  Company Number: 2008S1009137

PATIENT
  Sex: Female

DRUGS (2)
  1. CITALOPRAM MERCK 20 MG (CITALOPRAM) [Suspect]
     Dosage: FILM-COATED TABLET; ORAL
     Route: 048
     Dates: start: 20080527
  2. SUBUTEX [Suspect]

REACTIONS (3)
  - LOSS OF CONSCIOUSNESS [None]
  - OVERDOSE [None]
  - SUICIDE ATTEMPT [None]
